FAERS Safety Report 19356754 (Version 3)
Quarter: 2021Q3

REPORT INFORMATION
  Report Type: Spontaneous
  Country: DE (occurrence: DE)
  Receive Date: 20210601
  Receipt Date: 20210709
  Transmission Date: 20211014
  Serious: Yes (Death, Hospitalization, Other)
  Sender: FDA-Public Use
  Company Number: DE-AUROBINDO-AUR-APL-2021-021498

PATIENT
  Sex: Male
  Weight: 72 kg

DRUGS (19)
  1. SALBUTAMOL [Concomitant]
     Active Substance: ALBUTEROL
     Indication: PRODUCT USED FOR UNKNOWN INDICATION
     Dosage: UNK(AS NEEDED)
     Route: 065
  2. TORASEMIDE [Concomitant]
     Active Substance: TORSEMIDE
     Dosage: UNK
     Route: 065
     Dates: end: 201908
  3. VALSARTAN. [Suspect]
     Active Substance: VALSARTAN
     Indication: HYPERTENSION
     Dosage: 160 MILLIGRAM, ONCE A DAY(160 MG, QD)
     Route: 065
  4. VALSARTAN. [Suspect]
     Active Substance: VALSARTAN
     Dosage: UNK
     Route: 065
     Dates: start: 2012, end: 2014
  5. SPIRIVA [Concomitant]
     Active Substance: TIOTROPIUM BROMIDE MONOHYDRATE
     Indication: PRODUCT USED FOR UNKNOWN INDICATION
     Dosage: 18 MICROGRAM, ONCE A DAY(18 UG, QD, 2 PUFF)
     Route: 055
  6. TORASEMIDE [Concomitant]
     Active Substance: TORSEMIDE
     Indication: PRODUCT USED FOR UNKNOWN INDICATION
     Dosage: 10 MILLIGRAM, ONCE A DAY(10 MG, QD, MORNING)
     Route: 065
     Dates: start: 201908
  7. ATORVASTATIN [Concomitant]
     Active Substance: ATORVASTATIN
     Indication: PRODUCT USED FOR UNKNOWN INDICATION
     Dosage: 20 MILLIGRAM, ONCE A DAY(20 MG, QD )
     Route: 065
  8. PANTOZOL [Concomitant]
     Active Substance: PANTOPRAZOLE SODIUM
     Indication: PRODUCT USED FOR UNKNOWN INDICATION
     Dosage: 40 MILLIGRAM, ONCE A DAY(40 MG, QD, MORNING )
     Route: 065
  9. VALSARTAN. [Suspect]
     Active Substance: VALSARTAN
     Dosage: 160 MILLIGRAM, ONCE A DAY(160 MG, QD)
     Route: 065
     Dates: end: 201908
  10. MOLSIDOMINE [Concomitant]
     Active Substance: MOLSIDOMINE
     Indication: PRODUCT USED FOR UNKNOWN INDICATION
     Dosage: 8 MILLIGRAM, ONCE A DAY(8 MG, QD, EVENING)
     Route: 065
  11. NOVALGIN [Concomitant]
     Dosage: 30 DROP(30 GTT, AS NEEDED)
     Route: 065
  12. ALLOPURINOL. [Concomitant]
     Active Substance: ALLOPURINOL
     Dosage: 150 MILLIGRAM, ONCE A DAY(? X150 MG, EVENING, )
     Route: 065
  13. VALSARTAN 1A PHARMA PLUS [Suspect]
     Active Substance: HYDROCHLOROTHIAZIDE\VALSARTAN
     Indication: HYPERTENSION
     Dosage: UNK , ONCE A DAY(160 MG / 12.5 MG, QD)
     Route: 065
     Dates: start: 2015, end: 2018
  14. ALLOPURINOL. [Concomitant]
     Active Substance: ALLOPURINOL
     Indication: PRODUCT USED FOR UNKNOWN INDICATION
     Dosage: 300 MILLIGRAM, ONCE A DAY(? X 300 MG, EVENING,)
     Route: 065
  15. GLUCOBAY [Concomitant]
     Active Substance: ACARBOSE
     Indication: PRODUCT USED FOR UNKNOWN INDICATION
     Dosage: 100 MILLIGRAM, ONCE A DAY(100 MG, QD, MORNING )
     Route: 065
  16. SIMVASTATIN. [Concomitant]
     Active Substance: SIMVASTATIN
     Indication: PRODUCT USED FOR UNKNOWN INDICATION
     Dosage: 20 MILLIGRAM, ONCE A DAY(20 MG, QD, EVENING)
     Route: 065
  17. VALSARTAN. [Suspect]
     Active Substance: VALSARTAN
     Dosage: 320 MILLIGRAM, ONCE A DAY(160 MG, BID)
     Route: 065
     Dates: start: 201908
  18. NOVALGIN [Concomitant]
     Indication: PRODUCT USED FOR UNKNOWN INDICATION
     Dosage: 40 DROP(40 GTT AS NEEDED UP TO 4X DAILY)
     Route: 065
  19. TOREM [Concomitant]
     Active Substance: TORSEMIDE
     Indication: PRODUCT USED FOR UNKNOWN INDICATION
     Dosage: 20 MILLIGRAM, ONCE A DAY(10 MG, BID, MORNING AND NOON)
     Route: 065

REACTIONS (42)
  - Pulmonary embolism [Unknown]
  - Chronic respiratory disease [Unknown]
  - Osteoarthritis [Unknown]
  - Bundle branch block right [Unknown]
  - Arthralgia [Unknown]
  - Mitral valve incompetence [Unknown]
  - Wheezing [Unknown]
  - Coronary artery disease [Unknown]
  - Chronic obstructive pulmonary disease [Unknown]
  - Arrhythmia [Unknown]
  - Haemorrhage [Unknown]
  - Hypertensive crisis [Recovered/Resolved]
  - Pneumonia [Unknown]
  - Bradycardia [Unknown]
  - Type 2 diabetes mellitus [Unknown]
  - Back pain [Fatal]
  - Hyperplasia [Fatal]
  - Fall [Unknown]
  - Ventricular hypertrophy [Unknown]
  - Bradyarrhythmia [Unknown]
  - Renal function test abnormal [Unknown]
  - Cough [Unknown]
  - Adrenal mass [Unknown]
  - Aortic aneurysm [Unknown]
  - Bronchial obstruction [Fatal]
  - Haemoptysis [Unknown]
  - Haemorrhagic cyst [Unknown]
  - Angiosclerosis [Unknown]
  - Nasal congestion [Unknown]
  - Cholelithiasis [Unknown]
  - Carcinoembryonic antigen increased [Fatal]
  - Dizziness [Unknown]
  - Cardiac failure [Unknown]
  - General physical health deterioration [Unknown]
  - Atrial fibrillation [Unknown]
  - Hepatomegaly [Unknown]
  - Bronchial carcinoma [Fatal]
  - Syncope [Unknown]
  - Tricuspid valve incompetence [Unknown]
  - Chronic kidney disease [Unknown]
  - Hepatic steatosis [Unknown]
  - Dyspnoea [Unknown]

NARRATIVE: CASE EVENT DATE: 201908
